FAERS Safety Report 6712561-8 (Version None)
Quarter: 2010Q2

REPORT INFORMATION
  Report Type: 
  Country: None (occurrence: None)
  Receive Date: 20100505
  Receipt Date: 20100505
  Transmission Date: 20101027
  Serious: Yes (Death, Disabling)
  Sender: FDA-Public Use
  Company Number: None

PATIENT
  Sex: Male
  Weight: 74.3899 kg

DRUGS (1)
  1. REGLAN [Suspect]
     Indication: GASTROOESOPHAGEAL REFLUX DISEASE
     Dosage: 10MG 4 TIMES A DAY ORALLY
     Route: 048
     Dates: start: 20050501, end: 20091001

REACTIONS (7)
  - CONFUSIONAL STATE [None]
  - DROOLING [None]
  - DYSPHAGIA [None]
  - PARKINSON'S DISEASE [None]
  - SOMNOLENCE [None]
  - SPEECH DISORDER [None]
  - TARDIVE DYSKINESIA [None]
